FAERS Safety Report 17195199 (Version 2)
Quarter: 2019Q4

REPORT INFORMATION
  Report Type: Spontaneous
  Country: JP (occurrence: JP)
  Receive Date: 20191224
  Receipt Date: 20191226
  Transmission Date: 20200122
  Serious: Yes (Hospitalization, Other)
  Sender: FDA-Public Use
  Company Number: JP-BRISTOL-MYERS SQUIBB COMPANY-BMS-2018-123645

PATIENT
  Age: 76 Year
  Sex: Female
  Weight: 42.6 kg

DRUGS (9)
  1. YERVOY [Suspect]
     Active Substance: IPILIMUMAB
     Indication: METASTATIC RENAL CELL CARCINOMA
     Dosage: 42.6 MILLIGRAM, Q3WK
     Route: 041
     Dates: start: 20181120
  2. LANSOPRAZOL [Concomitant]
     Active Substance: LANSOPRAZOLE
     Indication: GASTROINTESTINAL DISORDER PROPHYLAXIS
     Dosage: 15 MILLIGRAM EVERYDAY
     Route: 048
     Dates: start: 20181127, end: 20190401
  3. TRAMAL [Concomitant]
     Active Substance: TRAMADOL
     Indication: PAIN
     Dosage: 25 MILLIGRAM, Q8H
     Route: 048
     Dates: start: 20190129, end: 20190318
  4. OPDIVO [Suspect]
     Active Substance: NIVOLUMAB
     Indication: METASTATIC RENAL CELL CARCINOMA
     Dosage: 240 MILLIGRAM, Q3WK
     Route: 041
     Dates: start: 20181120
  5. NAIXAN [NAPROXEN SODIUM] [Concomitant]
     Indication: PYREXIA
     Dosage: 100 MILLIGRAM, Q8H
     Route: 048
     Dates: start: 20181127, end: 20190114
  6. CALONAL [Concomitant]
     Active Substance: ACETAMINOPHEN
     Indication: PAIN
     Dosage: 500 MILLIGRAM, Q8H
     Route: 048
     Dates: start: 20190128, end: 20190318
  7. MIYA-BM [Concomitant]
     Active Substance: CLOSTRIDIUM BUTYRICUM SPORES STRAIN M-55
     Indication: DIARRHOEA
     Dosage: 1 GRAM, Q8H
     Route: 048
     Dates: start: 20190206, end: 20190429
  8. POLAPREZINC [Concomitant]
     Active Substance: POLAPREZINC
     Indication: ZINC DEFICIENCY
     Dosage: 75 MILLIGRAM EVERYDAY
     Route: 048
     Dates: start: 20190115, end: 20190304
  9. MEDROL [Concomitant]
     Active Substance: METHYLPREDNISOLONE
     Indication: ALLERGY PROPHYLAXIS
     Dosage: 32 MILLIGRAM EVERYDAY
     Route: 048
     Dates: start: 20190709, end: 20190710

REACTIONS (7)
  - Haematuria [Not Recovered/Not Resolved]
  - Nasopharyngitis [Unknown]
  - Urticaria [Recovered/Resolved]
  - Malaise [Recovered/Resolved]
  - Dysuria [Unknown]
  - Tumour haemorrhage [Recovering/Resolving]
  - Toxic skin eruption [Recovering/Resolving]

NARRATIVE: CASE EVENT DATE: 20181218
